FAERS Safety Report 7780981-9 (Version None)
Quarter: 2011Q3

REPORT INFORMATION
  Report Type: 
  Country: None (occurrence: None)
  Receive Date: 20110927
  Receipt Date: 20110912
  Transmission Date: 20111222
  Serious: Yes (Other)
  Sender: FDA-Public Use
  Company Number: PHHY2011BR81814

PATIENT
  Age: 65 Year
  Sex: Male

DRUGS (4)
  1. DIOVAN HCT [Suspect]
     Dosage: 1 DF (320/12.5 MG), UNK
  2. RASILEZ [Suspect]
     Dosage: 300 MG, UNK
  3. MANIDIPINE [Suspect]
     Dosage: 10 MG, UNK
  4. METFORMIN HCL [Suspect]
     Dosage: 850 MG, BID

REACTIONS (7)
  - DIASTOLIC DYSFUNCTION [None]
  - ABDOMINAL DISTENSION [None]
  - DILATATION ATRIAL [None]
  - BUNDLE BRANCH BLOCK [None]
  - AORTIC DILATATION [None]
  - BLOOD PRESSURE DIASTOLIC DECREASED [None]
  - MITRAL VALVE INCOMPETENCE [None]
